FAERS Safety Report 8331287-0 (Version None)
Quarter: 2012Q2

REPORT INFORMATION
  Report Type: 
  Country: None (occurrence: None)
  Receive Date: 20120502
  Receipt Date: 20120416
  Transmission Date: 20120825
  Serious: No
  Sender: FDA-Public Use
  Company Number: US-AMGEN-USASP2012023955

PATIENT
  Age: 36 Year
  Sex: Female

DRUGS (1)
  1. ENBREL [Suspect]
     Indication: PSORIASIS
     Dosage: 50 MG, 2 TIMES/WK
     Dates: start: 20050401

REACTIONS (5)
  - NASOPHARYNGITIS [None]
  - HYPERSENSITIVITY [None]
  - EPISTAXIS [None]
  - SEASONAL ALLERGY [None]
  - OROPHARYNGEAL PAIN [None]
